FAERS Safety Report 21666401 (Version 1)
Quarter: 2022Q4

REPORT INFORMATION
  Report Type: Other
  Country: DE (occurrence: None)
  Receive Date: 20221201
  Receipt Date: 20221201
  Transmission Date: 20230113
  Serious: No
  Sender: FDA-Public Use
  Company Number: DE-ROCHE-3225546

PATIENT
  Age: 32 Year
  Sex: Female

DRUGS (8)
  1. OCRELIZUMAB [Suspect]
     Active Substance: OCRELIZUMAB
     Indication: Relapsing multiple sclerosis
     Route: 042
     Dates: start: 20210317, end: 20210331
  2. OCRELIZUMAB [Suspect]
     Active Substance: OCRELIZUMAB
     Route: 042
     Dates: start: 20211027
  3. COMIRNATY [Concomitant]
     Active Substance: TOZINAMERAN
     Indication: COVID-19 immunisation
     Dosage: DEFINITION OF THE INTERVAL: AS REQUIRED
     Route: 030
     Dates: start: 20210915, end: 20210915
  4. COMIRNATY [Concomitant]
     Active Substance: TOZINAMERAN
     Dosage: DEFINITION OF THE INTERVAL: AS REQUIRED
     Route: 030
     Dates: start: 20210818, end: 20210818
  5. COMIRNATY [Concomitant]
     Active Substance: TOZINAMERAN
     Dosage: DEFINITION OF THE INTERVAL: AS REQUIRED
     Route: 030
     Dates: start: 20220309, end: 20220309
  6. CHOLECALCIFEROL [Concomitant]
     Active Substance: CHOLECALCIFEROL
     Route: 048
     Dates: start: 20210316
  7. CALCIUM MONOETHYLFUMARATE\DIMETHYL FUMARATE\MAGNESIUM MONOETHYLFUMARAT [Concomitant]
     Active Substance: CALCIUM MONOETHYLFUMARATE\DIMETHYL FUMARATE\MAGNESIUM MONOETHYLFUMARATE\ZINC MONOETHYLFUMARATE
     Dates: start: 201307, end: 201402
  8. CITALOPRAM [Concomitant]
     Active Substance: CITALOPRAM HYDROBROMIDE
     Route: 048
     Dates: start: 20220414

REACTIONS (1)
  - COVID-19 [Recovered/Resolved]

NARRATIVE: CASE EVENT DATE: 20221001
